FAERS Safety Report 4682271-X (Version None)
Quarter: 2005Q2

REPORT INFORMATION
  Report Type: 
  Country: None (occurrence: None)
  Receive Date: 20050531
  Receipt Date: 20050304
  Transmission Date: 20051028
  Serious: No
  Sender: FDA-Public Use
  Company Number: 2004BI000589

PATIENT
  Age: 33 Year
  Sex: Female

DRUGS (5)
  1. AMEVIVE [Suspect]
     Indication: PSORIASIS
     Dosage: 15 MG; QW; IM
     Route: 030
     Dates: start: 20040901, end: 20041021
  2. LIPITOR [Concomitant]
  3. LISINOPRIL [Concomitant]
  4. INSULIN [Concomitant]
  5. DIGOXIN [Concomitant]

REACTIONS (1)
  - PYREXIA [None]
